FAERS Safety Report 23661030 (Version 3)
Quarter: 2024Q2

REPORT INFORMATION
  Report Type: Spontaneous
  Country: US (occurrence: US)
  Receive Date: 20240322
  Receipt Date: 20240613
  Transmission Date: 20240716
  Serious: Yes (Hospitalization, Other)
  Sender: FDA-Public Use
  Company Number: US-BRISTOL-MYERS SQUIBB COMPANY-2024-043133

PATIENT
  Age: 75 Year
  Sex: Male
  Weight: 93.71 kg

DRUGS (7)
  1. POMALYST [Suspect]
     Active Substance: POMALIDOMIDE
     Indication: Plasma cell myeloma
     Dosage: FREQUENCY: DAILY DAYS 1-21, EVERY 28 DAYS
     Route: 048
     Dates: start: 20240115
  2. POMALYST [Suspect]
     Active Substance: POMALIDOMIDE
     Dosage: FREQUENCY: DAILY DAYS 1-21, EVERY 28 DAYS
     Route: 048
     Dates: start: 20240115
  3. ASPIRIN [Concomitant]
     Active Substance: ASPIRIN
     Indication: Product used for unknown indication
     Dosage: FREQUENCY: DAILY
     Route: 048
     Dates: start: 20240115
  4. DEXAMETHASONE [Concomitant]
     Active Substance: DEXAMETHASONE
     Indication: Product used for unknown indication
     Route: 048
     Dates: start: 20201130
  5. AMLODIPINE BESYLATE AND BENAZEPRIL HYDROCHLORIDE [Concomitant]
     Active Substance: AMLODIPINE BESYLATE\BENAZEPRIL HYDROCHLORIDE
     Indication: Product used for unknown indication
     Dosage: DOSE: 10-20 MG
     Route: 048
     Dates: start: 20201130
  6. JANUMET XR [Concomitant]
     Active Substance: METFORMIN HYDROCHLORIDE\SITAGLIPTIN PHOSPHATE
     Indication: Product used for unknown indication
     Dosage: DOSE: 100-1000 MG
     Route: 048
     Dates: start: 20201130
  7. BYSTOLIC [Concomitant]
     Active Substance: NEBIVOLOL HYDROCHLORIDE
     Indication: Product used for unknown indication
     Route: 048
     Dates: start: 20201130

REACTIONS (10)
  - Dehydration [Recovering/Resolving]
  - Blood potassium increased [Recovering/Resolving]
  - Blood magnesium decreased [Recovering/Resolving]
  - Pulmonary thrombosis [Recovering/Resolving]
  - Urinary tract infection [Recovering/Resolving]
  - Penile haemorrhage [Recovering/Resolving]
  - Plasma cell myeloma [Not Recovered/Not Resolved]
  - Fall [Not Recovered/Not Resolved]
  - Blood potassium decreased [Unknown]
  - Pathological fracture [Not Recovered/Not Resolved]

NARRATIVE: CASE EVENT DATE: 20240101
